FAERS Safety Report 6996386-4 (Version None)
Quarter: 2010Q3

REPORT INFORMATION
  Report Type: 
  Country: None (occurrence: None)
  Receive Date: 20100918
  Receipt Date: 20090126
  Transmission Date: 20110219
  Serious: No
  Sender: FDA-Public Use
  Company Number: US-WYE-H07938909

PATIENT
  Sex: Female
  Weight: 83.99 kg

DRUGS (6)
  1. EFFEXOR XR [Suspect]
     Indication: DEPRESSION
     Route: 048
     Dates: start: 20050101
  2. EFFEXOR XR [Suspect]
     Indication: IRRITABLE BOWEL SYNDROME
     Dosage: GRADUALLY WENT UP TO 300 MG DAILY
     Route: 048
     Dates: end: 20080601
  3. EFFEXOR XR [Suspect]
     Dosage: TAPERING THE DOSE SLOWLY, BY 75 MG ^EVERY SO OFTEN^
     Route: 048
     Dates: start: 20080601, end: 20081201
  4. EFFEXOR XR [Suspect]
     Route: 048
     Dates: start: 20081201, end: 20081201
  5. EFFEXOR XR [Suspect]
     Dosage: TAKING 37.5 MG DAILY AND SKIPPING DAYS
     Route: 048
     Dates: start: 20081201
  6. VYTORIN [Concomitant]

REACTIONS (8)
  - ANGER [None]
  - DRUG WITHDRAWAL SYNDROME [None]
  - MANIA [None]
  - NAUSEA [None]
  - PALPITATIONS [None]
  - PARAESTHESIA [None]
  - PSYCHIATRIC SYMPTOM [None]
  - WEIGHT INCREASED [None]
